FAERS Safety Report 7635602-2 (Version None)
Quarter: 2011Q3

REPORT INFORMATION
  Report Type: 
  Country: None (occurrence: None)
  Receive Date: 20110726
  Receipt Date: 20110713
  Transmission Date: 20111222
  Serious: Yes (Hospitalization)
  Sender: FDA-Public Use
  Company Number: PHHY2011BR63740

PATIENT
  Sex: Male

DRUGS (2)
  1. EXELON [Suspect]
     Dosage: 4.6 MG, UNK
     Route: 062
  2. ALOIS [Concomitant]
     Dosage: UNK UKN, UNK

REACTIONS (4)
  - ABASIA [None]
  - BLOOD SODIUM DECREASED [None]
  - BLISTER [None]
  - DRUG INEFFECTIVE [None]
